FAERS Safety Report 13960900 (Version 4)
Quarter: 2017Q4

REPORT INFORMATION
  Report Type: Spontaneous
  Country: SE (occurrence: SE)
  Receive Date: 20170912
  Receipt Date: 20171102
  Transmission Date: 20180320
  Serious: Yes (Hospitalization, Other)
  Sender: FDA-Public Use
  Company Number: SE-PFIZER INC-2017387506

PATIENT
  Age: 72 Year
  Sex: Female

DRUGS (25)
  1. CELEBRA [Suspect]
     Active Substance: CELECOXIB
     Indication: MYALGIA
  2. DOLCONTIN [Concomitant]
     Active Substance: MORPHINE
     Indication: SPINAL COLUMN STENOSIS
     Dosage: 5 MG, AS NEEDED (MAX 2X/DAY)
     Dates: start: 20160909
  3. ALVEDON [Concomitant]
     Active Substance: ACETAMINOPHEN
     Indication: PAIN
  4. PARAFLEX [Concomitant]
     Active Substance: CHLORZOXAZONE
     Indication: SPINAL COLUMN STENOSIS
     Dosage: 250 MG, AS NEEDED (1 TABLET MAX 3/DAY)
     Dates: start: 20161103
  5. PEVARYL [Concomitant]
     Active Substance: ECONAZOLE NITRATE
     Indication: FUNGAL INFECTION
     Dosage: UNK UNK, AS NEEDED (MAX 2/DAY)
     Dates: start: 20151111
  6. MOVICOL [Concomitant]
     Active Substance: POLYETHYLENE GLYCOL 3350\POTASSIUM CHLORIDE\SODIUM BICARBONATE\SODIUM CHLORIDE
     Indication: CONSTIPATION
     Dosage: 1 DF, DAILY
     Dates: start: 20161103
  7. ESIDREX [Concomitant]
     Active Substance: HYDROCHLOROTHIAZIDE
     Dosage: 25 MG, 1X/DAY
     Dates: start: 20111102
  8. LOSARTAN KRKA [Concomitant]
     Active Substance: LOSARTAN
     Indication: HYPERTENSION
     Dosage: 50 MG, 1X/DAY
     Dates: start: 20150323
  9. FENURIL [Concomitant]
     Indication: DRY SKIN
     Dosage: 2 APPLICATIONS/DAY
     Dates: start: 20151016
  10. OXASCAND [Concomitant]
     Active Substance: OXAZEPAM
     Indication: ANXIETY
     Dosage: 5 MG AS NEEDED, MAXIMUM 2 TABLETS/DAY
     Dates: start: 20160902
  11. PARAFLEX [Concomitant]
     Active Substance: CHLORZOXAZONE
     Indication: PAIN
  12. PREDNISOLON ALTERNOVA [Concomitant]
     Active Substance: PREDNISOLONE
     Indication: ARTHRALGIA
     Dosage: 5 MG, UNK
     Dates: start: 20150420
  13. OFTAGEL [Concomitant]
     Active Substance: CARBOMER
     Indication: DRY EYE
     Dosage: UNK UNK, 2X/DAY
     Dates: start: 20150219
  14. CELEBRA [Suspect]
     Active Substance: CELECOXIB
     Indication: ARTHRALGIA
  15. KALCIPOS D FORTE [Concomitant]
     Dosage: 1 DF, 2X/DAY
     Dates: start: 20150219
  16. DOLCONTIN [Concomitant]
     Active Substance: MORPHINE
     Indication: PAIN
  17. XERODENT [Concomitant]
     Indication: DRY MOUTH
     Dosage: MAXIMUM 6 TABLETS/DAY
     Dates: start: 20150219
  18. CELEBRA [Suspect]
     Active Substance: CELECOXIB
     Indication: FIBROMYALGIA
     Dosage: 300 MG, DAILY
     Route: 048
     Dates: start: 1990, end: 20170606
  19. BEHEPAN [Concomitant]
     Active Substance: HYDROXOCOBALAMIN
     Dosage: 1 MG, 1X/DAY
     Dates: start: 20111102
  20. VAGIFEM [Concomitant]
     Active Substance: ESTRADIOL
     Dosage: 1 DF, UNK
     Route: 067
     Dates: start: 20120209
  21. KETOCONAZOL ACTAVIS [Concomitant]
     Indication: DANDRUFF
     Dosage: UNK UNK, AS NEEDED
     Dates: start: 20160309
  22. DOLCONTIN [Concomitant]
     Active Substance: MORPHINE
     Indication: PAIN
     Dosage: 5 MG, 2X/DAY
     Dates: start: 20170821
  23. ALVEDON [Concomitant]
     Active Substance: ACETAMINOPHEN
     Indication: SPINAL COLUMN STENOSIS
     Dosage: AS NEEDED (1-2 TABLETS AS NEEDED, MAXIMUM 6 TABLETS/DAY)
     Dates: start: 20160420
  24. LAXIDO APELSIN [Concomitant]
     Indication: GASTROINTESTINAL DISORDER
     Dosage: UNK
     Dates: start: 20170313
  25. MORFIN MEDA [Concomitant]
     Active Substance: MORPHINE SULFATE
     Indication: PAIN
     Dosage: 0.5-1 TABLET, AS NEEDED (MAX 2/DAY)
     Dates: start: 20161118

REACTIONS (9)
  - Sciatica [Not Recovered/Not Resolved]
  - Gastric polyps [Not Recovered/Not Resolved]
  - Intestinal polyp [Not Recovered/Not Resolved]
  - Yellow skin [Recovered/Resolved]
  - Product use in unapproved indication [Unknown]
  - Acute hepatic failure [Recovered/Resolved]
  - Renal failure [Recovering/Resolving]
  - Haemorrhage [Unknown]
  - Blood test abnormal [Unknown]

NARRATIVE: CASE EVENT DATE: 1990
